FAERS Safety Report 17236522 (Version 2)
Quarter: 2020Q1

REPORT INFORMATION
  Report Type: Report from Study
  Country: GR (occurrence: GR)
  Receive Date: 20200106
  Receipt Date: 20200128
  Transmission Date: 20200409
  Serious: Yes (Hospitalization)
  Sender: FDA-Public Use
  Company Number: GR-ACTELION-A-CH2019-199974

PATIENT
  Age: 51 Year
  Sex: Female
  Weight: 48 kg

DRUGS (12)
  1. OPSUMIT [Suspect]
     Active Substance: MACITENTAN
     Indication: PULMONARY ARTERIAL HYPERTENSION
     Dosage: 10 MG, QD
     Route: 048
     Dates: start: 20181218
  2. UPTRAVI [Suspect]
     Active Substance: SELEXIPAG
     Dosage: 400 MCG, QD
     Route: 048
     Dates: start: 20190712, end: 20190718
  3. TROFOCARD [Concomitant]
     Dosage: 1 DF, BID
     Route: 048
     Dates: start: 20191217, end: 20191218
  4. UPTRAVI [Suspect]
     Active Substance: SELEXIPAG
     Dosage: 1600 MCG, QD
     Route: 048
     Dates: start: 20190802, end: 20190808
  5. UPTRAVI [Suspect]
     Active Substance: SELEXIPAG
     Dosage: 2000 MCG, QD
     Route: 048
     Dates: start: 20190808, end: 20190815
  6. UPTRAVI [Suspect]
     Active Substance: SELEXIPAG
     Dosage: 800 MCG, QD
     Route: 048
     Dates: start: 20190719, end: 20190725
  7. UPTRAVI [Suspect]
     Active Substance: SELEXIPAG
     Indication: PULMONARY ARTERIAL HYPERTENSION
     Dosage: 2400 MCG, QD
     Route: 048
     Dates: start: 20190816, end: 20191224
  8. UPTRAVI [Suspect]
     Active Substance: SELEXIPAG
     Dosage: 1200 MCG, QD
     Route: 048
     Dates: start: 20190725, end: 20190801
  9. ADCIRCA [Concomitant]
     Active Substance: TADALAFIL
     Indication: PULMONARY ARTERIAL HYPERTENSION
     Dosage: 40 MG, QD
     Route: 048
     Dates: start: 20181218
  10. TROFOCARD [Concomitant]
     Indication: BLOOD MAGNESIUM DECREASED
     Dosage: 1 DF, OD
     Route: 048
     Dates: start: 20191218
  11. CLEXANE [Concomitant]
     Active Substance: ENOXAPARIN SODIUM
     Indication: PROPHYLAXIS
     Dosage: 40 MG, OD
     Route: 058
     Dates: start: 20191216
  12. LOSEC [Concomitant]
     Active Substance: OMEPRAZOLE
     Dosage: UNK
     Route: 048
     Dates: start: 20191213

REACTIONS (9)
  - Blood alkaline phosphatase increased [Unknown]
  - Pulmonary arterial hypertension [Unknown]
  - Disease progression [Recovering/Resolving]
  - Blood urea decreased [Unknown]
  - Dyspnoea [Unknown]
  - Haematocrit decreased [Unknown]
  - Condition aggravated [Unknown]
  - Blood creatine phosphokinase decreased [Unknown]
  - N-terminal prohormone brain natriuretic peptide increased [Unknown]

NARRATIVE: CASE EVENT DATE: 20191201
